FAERS Safety Report 9147115 (Version 2)
Quarter: 2013Q4

REPORT INFORMATION
  Report Type: Spontaneous
  Country: US (occurrence: US)
  Receive Date: 20130307
  Receipt Date: 20131025
  Transmission Date: 20140711
  Serious: Yes (Hospitalization)
  Sender: FDA-Public Use
  Company Number: US-BAYER-2013-025554

PATIENT
  Age: 30 Year
  Sex: Female

DRUGS (2)
  1. MIRENA [Suspect]
     Indication: CONTRACEPTION
     Dosage: 20 MCG/24HR, CONT
     Route: 015
     Dates: start: 200903, end: 201102
  2. METFORMIN [Concomitant]
     Indication: DIABETES MELLITUS
     Dosage: UNK
     Dates: start: 200602, end: 2009

REACTIONS (10)
  - Uterine perforation [None]
  - Abdominal pain [None]
  - Injury [None]
  - Emotional distress [None]
  - Device dislocation [None]
  - Feeling abnormal [None]
  - Scar [None]
  - Back pain [None]
  - Alopecia [None]
  - Alopecia areata [None]
